FAERS Safety Report 8374969-7 (Version None)
Quarter: 2012Q2

REPORT INFORMATION
  Report Type: 
  Country: None (occurrence: None)
  Receive Date: 20120521
  Receipt Date: 20120515
  Transmission Date: 20120825
  Serious: Yes (Other)
  Sender: FDA-Public Use
  Company Number: JP-ROCHE-1058661

PATIENT
  Sex: Male
  Weight: 59 kg

DRUGS (9)
  1. AVASTIN [Suspect]
     Indication: LUNG ADENOCARCINOMA METASTATIC
     Route: 041
     Dates: start: 20120403, end: 20120403
  2. DOCETAXEL [Suspect]
     Indication: LUNG ADENOCARCINOMA METASTATIC
     Route: 041
     Dates: start: 20120403, end: 20120403
  3. PANVITAN [Concomitant]
     Indication: PROPHYLAXIS
     Route: 048
     Dates: start: 20120322
  4. MIYA BM [Concomitant]
     Route: 048
  5. ADVAIR DISKUS 100/50 [Concomitant]
     Route: 055
  6. MUCOSTA [Concomitant]
     Indication: PAIN
     Route: 048
     Dates: start: 20120403
  7. LOXONIN [Suspect]
     Indication: PAIN
     Route: 048
     Dates: start: 20120403
  8. EXFORGE [Concomitant]
     Dosage: DOSAGE IS UNCERTAIN.
     Route: 048
  9. MUCOSOLVAN [Concomitant]
     Indication: PRODUCTIVE COUGH
     Route: 048
     Dates: start: 20120405

REACTIONS (4)
  - COLITIS ISCHAEMIC [None]
  - NEUTROPHIL COUNT DECREASED [None]
  - WHITE BLOOD CELL COUNT DECREASED [None]
  - CONSTIPATION [None]
